FAERS Safety Report 16714815 (Version 1)
Quarter: 2019Q3

REPORT INFORMATION
  Report Type: Spontaneous
  Country: US (occurrence: US)
  Receive Date: 20190702
  Receipt Date: 20190702
  Transmission Date: 20191005
  Serious: No
  Sender: FDA-Public Use
  Company Number: None

PATIENT

DRUGS (1)
  1. EAR WAX KIT WELL AT WALGREENS [Suspect]
     Active Substance: CARBAMIDE PEROXIDE

REACTIONS (3)
  - Application site pain [None]
  - Impaired work ability [None]
  - Deafness [None]
